FAERS Safety Report 7332924-X (Version None)
Quarter: 2011Q1

REPORT INFORMATION
  Report Type: 
  Country: None (occurrence: None)
  Receive Date: 20110304
  Receipt Date: 20110221
  Transmission Date: 20110831
  Serious: Yes (Hospitalization)
  Sender: FDA-Public Use
  Company Number: CN-KINGPHARMUSA00001-K201100210

PATIENT
  Age: 79 Year
  Sex: Male

DRUGS (2)
  1. LEVOXYL [Suspect]
     Dosage: 37.5 MCG, QD
     Route: 048
     Dates: start: 20100201
  2. LEVOXYL [Suspect]
     Indication: HYPOTHYROIDISM
     Dosage: UNK
     Route: 048
     Dates: start: 20070101, end: 20100101

REACTIONS (11)
  - HYPOTENSION [None]
  - ABDOMINAL MASS [None]
  - HYPONATRAEMIA [None]
  - SKIN HYPERPIGMENTATION [None]
  - ATRIAL FIBRILLATION [None]
  - MOOD ALTERED [None]
  - HYPOPITUITARISM [None]
  - ADRENOCORTICAL INSUFFICIENCY ACUTE [None]
  - HYPERHIDROSIS [None]
  - CONSTIPATION [None]
  - DIARRHOEA [None]
